FAERS Safety Report 18381416 (Version 1)
Quarter: 2020Q4

REPORT INFORMATION
  Report Type: Spontaneous
  Country: US (occurrence: US)
  Receive Date: 20201014
  Receipt Date: 20201014
  Transmission Date: 20210114
  Serious: No
  Sender: FDA-Public Use
  Company Number: US-BEH-2020123293

PATIENT
  Sex: Male

DRUGS (3)
  1. PRIVIGEN [Suspect]
     Active Substance: HUMAN IMMUNOGLOBULIN G
     Dosage: 85 GRAM (DAILY FOR 2 DAYS EVERY 3 WEEKS)
     Route: 042
     Dates: start: 20200924, end: 20200924
  2. PRIVIGEN [Suspect]
     Active Substance: HUMAN IMMUNOGLOBULIN G
     Dosage: UNK
     Route: 042
  3. PRIVIGEN [Suspect]
     Active Substance: HUMAN IMMUNOGLOBULIN G
     Dosage: 85 GRAM, Q3W (DAILY FOR 2 DAYS EVERY 3 WEEKS)
     Route: 042
     Dates: start: 20200925, end: 20200925

REACTIONS (1)
  - Constipation [Recovered/Resolved]
